FAERS Safety Report 9717658 (Version 1)
Quarter: 2013Q4

REPORT INFORMATION
  Report Type: Spontaneous
  Country: US (occurrence: None)
  Receive Date: 20131122
  Receipt Date: 20131122
  Transmission Date: 20140711
  Serious: Yes (Hospitalization, Other)
  Sender: FDA-Public Use
  Company Number: 2013-US-003124

PATIENT
  Age: 63 Year
  Sex: Female

DRUGS (3)
  1. XYREM (SODIUM OXYBATE) ORAL SOLUTION, 500MG/ML [Suspect]
     Indication: NARCOLEPSY
     Route: 048
     Dates: start: 201310, end: 201310
  2. BYSTOLIC (NEBIVOLOL HYDROCHLORIDE) [Concomitant]
  3. DIOVAN (VALSARTAN) [Concomitant]

REACTIONS (6)
  - Chest pain [None]
  - Chest discomfort [None]
  - Blood glucose increased [None]
  - Hypertension [None]
  - Middle insomnia [None]
  - Drug dose omission [None]
